FAERS Safety Report 18207986 (Version 1)
Quarter: 2020Q3

REPORT INFORMATION
  Report Type: Spontaneous
  Country: US (occurrence: US)
  Receive Date: 20200828
  Receipt Date: 20200828
  Transmission Date: 20201103
  Serious: No
  Sender: FDA-Public Use
  Company Number: None

PATIENT
  Age: 41 Year
  Sex: Female
  Weight: 80.74 kg

DRUGS (18)
  1. ATIVAN [Concomitant]
     Active Substance: LORAZEPAM
  2. GLUCOSAMINE CHONDROITIN COMPLX [Concomitant]
  3. FAMOTIDINE. [Concomitant]
     Active Substance: FAMOTIDINE
  4. FLEXERIL [Concomitant]
     Active Substance: CYCLOBENZAPRINE HYDROCHLORIDE
  5. COMPAZINE [Concomitant]
     Active Substance: PROCHLORPERAZINE MALEATE
  6. ZOFRAN [Concomitant]
     Active Substance: ONDANSETRON HYDROCHLORIDE
  7. VITAMIN B COMPLEX [Concomitant]
     Active Substance: CYANOCOBALAMIN\DEXPANTHENOL\NIACINAMIDE\PYRIDOXINE HYDROCHLORIDE\RIBOFLAVIN 5^-PHOSPHATE SODIUM\THIAMINE HYDROCHLORIDE\VITAMIN B COMPLEX
  8. TYLENOL 8HR [Concomitant]
     Active Substance: ACETAMINOPHEN
  9. CAPECITABINE. [Suspect]
     Active Substance: CAPECITABINE
     Indication: NEOPLASM MALIGNANT
     Route: 048
     Dates: start: 20200817
  10. OXYCODONE HYDROCHLORIDE. [Concomitant]
     Active Substance: OXYCODONE HYDROCHLORIDE
  11. IRON [Concomitant]
     Active Substance: IRON
  12. VITAMIN B6 [Concomitant]
     Active Substance: PYRIDOXINE HYDROCHLORIDE
  13. TUKYSA 150 MG TABLET 60 CT [Concomitant]
  14. SIMETHICONE EXTRA STRENGTH [Concomitant]
  15. MOTRIN IB [Concomitant]
     Active Substance: IBUPROFEN
  16. PROBIOTIC [Concomitant]
     Active Substance: PROBIOTICS NOS
  17. HERCEPTIN [Concomitant]
     Active Substance: TRASTUZUMAB
  18. CALCIUM [Concomitant]
     Active Substance: CALCIUM

REACTIONS (3)
  - Nausea [None]
  - Vomiting [None]
  - Malaise [None]

NARRATIVE: CASE EVENT DATE: 20200828
